FAERS Safety Report 10035826 (Version 1)
Quarter: 2014Q1

REPORT INFORMATION
  Report Type: Spontaneous
  Country: US (occurrence: None)
  Receive Date: 20140306
  Receipt Date: 20140306
  Transmission Date: 20141002
  Serious: Yes (Other)
  Sender: FDA-Public Use
  Company Number: 163-21880-12123421

PATIENT
  Age: 72 Year
  Sex: Female
  Weight: 71.22 kg

DRUGS (11)
  1. REVLIMID [Suspect]
     Indication: PLASMA CELL MYELOMA
     Dosage: 5 MG, 1 IN 1 D, PO
     Route: 048
     Dates: start: 20100601
  2. COREG (CARVEDILOL) - (TABLETS) [Concomitant]
  3. CYTOXAN (CYCLOPHOSPHAMIDE) (UNKNOWN) [Concomitant]
  4. DEXAMETHASONE (DEXAMETHASONE) (UNKNOWN) [Concomitant]
  5. LIVALO (ITAVASTATIN CALCIUM) (TABLETS) [Concomitant]
  6. MAGNESIUM (MAGNESIUM)  (UNKNOWN) [Concomitant]
  7. MARINOL (DRONABINOL) (CAPSULES) [Concomitant]
  8. MULTIVITAMINS (MULTIVITAMINS) (CAPSULES) [Concomitant]
  9. OMEPRAZOLE (OMEPRAZOLE) (UNKNOWN) [Concomitant]
  10. ONDANSETRON HCL (ONDANSETRON HYDROCHLORIDE) (UNKNOWN) [Concomitant]
  11. POTASSIUM (POTASSIUM) (TABLETS) [Concomitant]

REACTIONS (1)
  - Deep vein thrombosis [None]
